FAERS Safety Report 6484854-3 (Version None)
Quarter: 2009Q4

REPORT INFORMATION
  Report Type: 
  Country: None (occurrence: None)
  Receive Date: 20091209
  Receipt Date: 20091130
  Transmission Date: 20100525
  Serious: Yes (Other)
  Sender: FDA-Public Use
  Company Number: PHHY2009JP42922

PATIENT
  Age: 17 Year
  Sex: Male

DRUGS (4)
  1. DIOVAN [Suspect]
     Indication: IGA NEPHROPATHY
     Dosage: 40 MG
     Route: 048
     Dates: start: 20090526, end: 20090713
  2. LISINOPRIL [Concomitant]
     Indication: IGA NEPHROPATHY
     Dosage: 5 MG, UNK
     Route: 048
  3. LISINOPRIL [Concomitant]
     Dosage: 20 MG
     Route: 048
     Dates: start: 20070319, end: 20090331
  4. LISINOPRIL [Concomitant]
     Dosage: 10 MG
     Route: 048
     Dates: start: 20090803

REACTIONS (4)
  - BLOOD CREATININE INCREASED [None]
  - BLOOD POTASSIUM INCREASED [None]
  - BLOOD UREA INCREASED [None]
  - BLOOD URIC ACID INCREASED [None]
